FAERS Safety Report 10512809 (Version 5)
Quarter: 2014Q4

REPORT INFORMATION
  Report Type: Spontaneous
  Country: DE (occurrence: DE)
  Receive Date: 20141013
  Receipt Date: 20141219
  Transmission Date: 20150528
  Serious: Yes (Disabling)
  Sender: FDA-Public Use
  Company Number: DE-ROCHE-1472727

PATIENT
  Sex: Female
  Weight: 80.2 kg

DRUGS (28)
  1. ERYTHROCYTE CONCENTRATE [Concomitant]
     Active Substance: HUMAN RED BLOOD CELL
     Dosage: 2 UNITS OF RBC
     Route: 065
     Dates: start: 20140328
  2. ZYPREXA [Concomitant]
     Active Substance: OLANZAPINE
     Route: 065
  3. AMITRIPTYLINE [Concomitant]
     Active Substance: AMITRIPTYLINE
     Route: 065
  4. ERYTHROCYTE CONCENTRATE [Concomitant]
     Active Substance: HUMAN RED BLOOD CELL
     Dosage: 2 UNITS OF RBC
     Route: 065
     Dates: start: 20140919
  5. L-THYROXIN [Concomitant]
     Active Substance: LEVOTHYROXINE SODIUM
     Route: 048
  6. DIAZEPAM. [Concomitant]
     Active Substance: DIAZEPAM
     Route: 065
  7. DEKRISTOL [Concomitant]
     Active Substance: CHOLECALCIFEROL
     Route: 065
  8. ERYTHROCYTE CONCENTRATE [Concomitant]
     Active Substance: HUMAN RED BLOOD CELL
     Indication: NEPHROGENIC ANAEMIA
     Dosage: MONTHS
     Route: 065
  9. ERYTHROCYTE CONCENTRATE [Concomitant]
     Active Substance: HUMAN RED BLOOD CELL
     Dosage: 2 UNITS OF RBC
     Route: 065
     Dates: start: 20140117
  10. ALLOPURINOL. [Concomitant]
     Active Substance: ALLOPURINOL
     Route: 048
  11. VENLAFAXINE [Concomitant]
     Active Substance: VENLAFAXINE HYDROCHLORIDE
     Route: 065
  12. TORASEMID [Concomitant]
     Active Substance: TORSEMIDE
     Route: 065
  13. PANTOZOL [Concomitant]
     Active Substance: PANTOPRAZOLE SODIUM
     Route: 065
  14. RENAGEL [Concomitant]
     Active Substance: SEVELAMER HYDROCHLORIDE
     Route: 065
  15. AMLODIPIN [Concomitant]
     Active Substance: AMLODIPINE BESYLATE
     Route: 065
  16. ERYTHROCYTE CONCENTRATE [Concomitant]
     Active Substance: HUMAN RED BLOOD CELL
     Dosage: 2 UNITS OF RBC
     Route: 065
     Dates: start: 20140417
  17. ERYTHROCYTE CONCENTRATE [Concomitant]
     Active Substance: HUMAN RED BLOOD CELL
     Dosage: 2 UNITS OF RBC
     Route: 065
     Dates: start: 20140626
  18. SIMVASTATIN. [Concomitant]
     Active Substance: SIMVASTATIN
     Route: 048
  19. FOLIC ACID. [Concomitant]
     Active Substance: FOLIC ACID
     Route: 065
  20. MIRCERA [Suspect]
     Active Substance: PEGZEREPOETIN ALFA
     Indication: NEPHROGENIC ANAEMIA
     Dosage: DOSAGES BETWEEN 50 MCG AND 100 MCG
     Route: 058
     Dates: start: 201302, end: 20140117
  21. ERYTHROCYTE CONCENTRATE [Concomitant]
     Active Substance: HUMAN RED BLOOD CELL
     Dosage: 2 UNITS OF RBC
     Route: 065
     Dates: start: 20140307
  22. VENOFER [Concomitant]
     Active Substance: IRON SUCROSE
     Indication: NEPHROGENIC ANAEMIA
     Route: 042
     Dates: start: 201302, end: 201303
  23. DELIX (GERMANY) [Concomitant]
     Dosage: 2.5 MG-0-5 MG
     Route: 065
  24. ERYTHROCYTE CONCENTRATE [Concomitant]
     Active Substance: HUMAN RED BLOOD CELL
     Dosage: 2 UNITS OF RBC
     Route: 065
     Dates: start: 20140314
  25. ASPIRIN. [Concomitant]
     Active Substance: ASPIRIN
     Route: 048
  26. MADOPAR LT [Concomitant]
     Active Substance: BENSERAZIDE HYDROCHLORIDE\LEVODOPA
     Route: 065
  27. NOVALGIN [Concomitant]
     Active Substance: METAMIZOLE SODIUM
     Route: 065
  28. BICANORM [Concomitant]
     Active Substance: SODIUM BICARBONATE
     Route: 065

REACTIONS (1)
  - Anaemia [Not Recovered/Not Resolved]
